FAERS Safety Report 6657218-7 (Version None)
Quarter: 2010Q1

REPORT INFORMATION
  Report Type: 
  Country: None (occurrence: None)
  Receive Date: 20100317
  Receipt Date: 20091221
  Transmission Date: 20100710
  Serious: No
  Sender: FDA-Public Use
  Company Number: DSA_41645_2009

PATIENT
  Sex: Female

DRUGS (6)
  1. XENAZINE [Suspect]
     Indication: TARDIVE DYSKINESIA
     Dosage: 12.5 MG TID, 12.5 MG QID, 12.5 MG, 2 TABLETS IN AM, 1 TABLET AT NOON AND 1 TABLET IN PM.
     Dates: start: 20090913, end: 20090101
  2. XENAZINE [Suspect]
     Indication: TARDIVE DYSKINESIA
     Dosage: 12.5 MG TID, 12.5 MG QID, 12.5 MG, 2 TABLETS IN AM, 1 TABLET AT NOON AND 1 TABLET IN PM.
     Dates: start: 20090818, end: 20090912
  3. XENAZINE [Suspect]
     Indication: TARDIVE DYSKINESIA
     Dosage: 12.5 MG TID, 12.5 MG QID, 12.5 MG, 2 TABLETS IN AM, 1 TABLET AT NOON AND 1 TABLET IN PM.
     Dates: start: 20091202
  4. AMITRIPTYLINE [Concomitant]
  5. CLONAZEPAM [Concomitant]
  6. TYLENOL W/ CODEINE [Concomitant]

REACTIONS (1)
  - FATIGUE [None]
